FAERS Safety Report 9343687 (Version 1)
Quarter: 2013Q2

REPORT INFORMATION
  Report Type: Spontaneous
  Country: DE (occurrence: None)
  Receive Date: 20130610
  Receipt Date: 20130610
  Transmission Date: 20140414
  Serious: Yes (Other)
  Sender: FDA-Public Use
  Company Number: HRA-CDB20120218

PATIENT
  Age: 26 Year
  Sex: Female

DRUGS (1)
  1. ELLAONE 30 MG TABLET (ELLAONE) (ULIPRISTAL ACETATE) [Suspect]
     Indication: CONTRACEPTION
     Dosage: (30 MG, 1 IN 1 D)
     Dates: start: 20120709, end: 20120709

REACTIONS (2)
  - Abortion spontaneous [None]
  - Unintended pregnancy [None]
